FAERS Safety Report 22186918 (Version 1)
Quarter: 2023Q2

REPORT INFORMATION
  Report Type: Spontaneous
  Country: US (occurrence: None)
  Receive Date: 20230407
  Receipt Date: 20230407
  Transmission Date: 20230721
  Serious: No
  Sender: FDA-Public Use
  Company Number: None

PATIENT
  Age: 72 Year
  Sex: Male
  Weight: 86.18 kg

DRUGS (4)
  1. COSENTYX [Suspect]
     Active Substance: SECUKINUMAB
     Indication: Psoriasis
     Dosage: OTHER QUANTITY : 300MG (2 PENS);?FREQUENCY : AS DIRECTED;?
     Route: 058
     Dates: start: 202112
  2. COSENTYX [Suspect]
     Active Substance: SECUKINUMAB
     Indication: Psoriatic arthropathy
  3. NURTEC ODT [Concomitant]
     Active Substance: RIMEGEPANT SULFATE
  4. METOPROLOL [Concomitant]
     Active Substance: METOPROLOL

REACTIONS (11)
  - Night sweats [None]
  - Headache [None]
  - Amnesia [None]
  - Sinusitis [None]
  - Ear infection [None]
  - Rhinitis [None]
  - Gingivitis [None]
  - Weight decreased [None]
  - Fatigue [None]
  - Joint lock [None]
  - Hypokinesia [None]
